FAERS Safety Report 9596728 (Version 2)
Quarter: 2013Q4

REPORT INFORMATION
  Report Type: Report from Study
  Country: NL (occurrence: NL)
  Receive Date: 20131004
  Receipt Date: 20131014
  Transmission Date: 20140711
  Serious: Yes (Hospitalization)
  Sender: FDA-Public Use
  Company Number: NL-GLAXOSMITHKLINE-B0926798A

PATIENT
  Age: 64 Year
  Sex: Female

DRUGS (7)
  1. TAFINLAR [Suspect]
     Indication: METASTATIC MALIGNANT MELANOMA
     Dosage: 150MG TWICE PER DAY
     Route: 048
     Dates: start: 20130807
  2. MEKINIST [Suspect]
     Indication: METASTATIC MALIGNANT MELANOMA
     Dosage: 2MG PER DAY
     Route: 048
     Dates: start: 20130807
  3. ZYPREXA [Concomitant]
     Indication: PSYCHOTIC DISORDER
     Dosage: 5MG PER DAY
     Route: 048
  4. HYDROCHLOROTHIAZID [Concomitant]
     Indication: BLOOD PRESSURE
     Dosage: 25MG PER DAY
     Route: 048
  5. ENALAPRIL [Concomitant]
     Indication: BLOOD PRESSURE
     Dosage: 2MG TWICE PER DAY
     Route: 048
  6. ZOLPIDEM [Concomitant]
     Indication: HYPNOTHERAPY
     Dosage: 2.5MG PER DAY
     Route: 048
  7. HALDOL [Concomitant]
     Indication: PSYCHOTIC DISORDER
     Dosage: 100MG MONTHLY

REACTIONS (1)
  - Urinary tract infection [Recovered/Resolved]
